FAERS Safety Report 21690659 (Version 3)
Quarter: 2023Q2

REPORT INFORMATION
  Report Type: Report from Study
  Country: US (occurrence: US)
  Receive Date: 20221206
  Receipt Date: 20230412
  Transmission Date: 20230721
  Serious: No
  Sender: FDA-Public Use
  Company Number: US-ABBVIE-4186017

PATIENT
  Sex: Female

DRUGS (3)
  1. SKYRIZI [Suspect]
     Active Substance: RISANKIZUMAB-RZAA
     Indication: Psoriasis
     Dosage: ONE IN ONCE, WEEK 0
     Route: 058
     Dates: start: 20221018, end: 20221018
  2. SKYRIZI [Suspect]
     Active Substance: RISANKIZUMAB-RZAA
     Route: 058
     Dates: start: 20230215
  3. SKYRIZI [Suspect]
     Active Substance: RISANKIZUMAB-RZAA
     Dosage: WEEK 4
     Route: 058
     Dates: start: 20221118, end: 20221118

REACTIONS (13)
  - Cough [Unknown]
  - Psoriasis [Unknown]
  - Drug ineffective [Not Recovered/Not Resolved]
  - Dyspnoea [Not Recovered/Not Resolved]
  - Feeling abnormal [Unknown]
  - Respiratory symptom [Not Recovered/Not Resolved]
  - Pneumonia [Unknown]
  - Blood pressure decreased [Unknown]
  - Chills [Unknown]
  - Pain [Unknown]
  - Lyme disease [Unknown]
  - Psoriatic arthropathy [Unknown]
  - Headache [Unknown]

NARRATIVE: CASE EVENT DATE: 20220101
